FAERS Safety Report 13429537 (Version 2)
Quarter: 2017Q3

REPORT INFORMATION
  Report Type: Report from Study
  Country: None (occurrence: US)
  Receive Date: 20170411
  Receipt Date: 20170719
  Transmission Date: 20171127
  Serious: No
  Sender: FDA-Public Use
  Company Number: US-ABBVIE-17K-163-1936116-00

PATIENT
  Age: 51 Year
  Sex: Female

DRUGS (1)
  1. HUMIRA [Suspect]
     Active Substance: ADALIMUMAB
     Indication: COLITIS ULCERATIVE
     Route: 058
     Dates: start: 20161229

REACTIONS (3)
  - Rectal haemorrhage [Recovered/Resolved]
  - Uterine infection [Recovering/Resolving]
  - Benign uterine neoplasm [Unknown]

NARRATIVE: CASE EVENT DATE: 201703
